FAERS Safety Report 4287180-6 (Version None)
Quarter: 2004Q1

REPORT INFORMATION
  Report Type: 
  Country: None (occurrence: None)
  Receive Date: 20040204
  Receipt Date: 20040122
  Transmission Date: 20041129
  Serious: Yes (Life-Threatening, Hospitalization, Other)
  Sender: FDA-Public Use
  Company Number: 2004004691

PATIENT
  Age: 49 Year
  Sex: Male
  Weight: 104 kg

DRUGS (18)
  1. NEURONTIN [Suspect]
     Indication: ILL-DEFINED DISORDER
     Dosage: 1800 (TID), ORAL
     Route: 048
     Dates: start: 20040116, end: 20040117
  2. LORAZEPAM [Suspect]
     Indication: ILL-DEFINED DISORDER
     Dates: end: 20040117
  3. HALOPERIDOL [Suspect]
     Indication: ILL-DEFINED DISORDER
     Dates: end: 20040117
  4. VALPROIC ACID [Suspect]
     Indication: ILL-DEFINED DISORDER
     Dates: end: 20040117
  5. SALBUTAMOL (SALBUTAMOL) [Concomitant]
  6. AMLODIPINE [Concomitant]
  7. ACETYLSALICYLIC ACID SRT [Concomitant]
  8. CLOPIDOGREL BISULFATE [Concomitant]
  9. ENALAPRIL MALEATE [Concomitant]
  10. EZETIMIBE (EZETIMIBE) [Concomitant]
  11. GLYBURIDE [Concomitant]
  12. ISOSORBIDE MONONITRATE [Concomitant]
  13. LEVOFLOXACIN [Concomitant]
  14. OLANZAPINE [Concomitant]
  15. PRENATAL VITAMINS (ASCORBIC ACID, BIOTIN , TOCOPHEROL, NICOTINIC ACID, [Concomitant]
  16. ROFECOXIB [Concomitant]
  17. SIMVASTATIN [Concomitant]
  18. ROSIGLITAZONE (ROSIGLITAZONE) [Concomitant]

REACTIONS (11)
  - BLOOD CALCIUM INCREASED [None]
  - BLOOD CREATININE INCREASED [None]
  - BLOOD POTASSIUM INCREASED [None]
  - BLOOD SODIUM INCREASED [None]
  - CARDIAC ARREST [None]
  - LIFE SUPPORT [None]
  - NEUROLOGICAL EXAMINATION ABNORMAL [None]
  - PUPIL FIXED [None]
  - RESPIRATORY FAILURE [None]
  - SEDATION [None]
  - UNRESPONSIVE TO PAIN STIMULI [None]
